FAERS Safety Report 7572056-9 (Version None)
Quarter: 2011Q2

REPORT INFORMATION
  Report Type: 
  Country: None (occurrence: None)
  Receive Date: 20110624
  Receipt Date: 20110621
  Transmission Date: 20111010
  Serious: Yes (Other)
  Sender: FDA-Public Use
  Company Number: CHPA2011US08320

PATIENT
  Age: 75 Year
  Sex: Male
  Weight: 63.492 kg

DRUGS (1)
  1. TRANSDERM SCOP [Suspect]
     Indication: INCREASED UPPER AIRWAY SECRETION
     Dosage: 1 DF, Q72H
     Route: 062
     Dates: start: 20110101

REACTIONS (2)
  - OFF LABEL USE [None]
  - APPLICATION SITE BURN [None]
